FAERS Safety Report 15757400 (Version 1)
Quarter: 2018Q4

REPORT INFORMATION
  Report Type: Spontaneous
  Country: CZ (occurrence: CZ)
  Receive Date: 20181224
  Receipt Date: 20181224
  Transmission Date: 20190205
  Serious: Yes (Other)
  Sender: FDA-Public Use
  Company Number: CZ-OTSUKA-2018_039169

PATIENT
  Age: 8 Year
  Sex: Female

DRUGS (3)
  1. CLONAZEPAM. [Suspect]
     Active Substance: CLONAZEPAM
     Indication: PSYCHOMOTOR HYPERACTIVITY
     Dosage: UNK
     Route: 065
  2. RISPERIDONE. [Suspect]
     Active Substance: RISPERIDONE
     Indication: PSYCHOMOTOR HYPERACTIVITY
     Dosage: UNK
     Route: 065
  3. ARIPIPRAZOLE. [Suspect]
     Active Substance: ARIPIPRAZOLE
     Indication: PSYCHOMOTOR HYPERACTIVITY
     Dosage: UNK
     Route: 065

REACTIONS (4)
  - Autoimmune thyroiditis [Unknown]
  - Product use in unapproved indication [Unknown]
  - Product use issue [Unknown]
  - Hyperprolactinaemia [Unknown]
